FAERS Safety Report 22319034 (Version 1)
Quarter: 2023Q2

REPORT INFORMATION
  Report Type: Spontaneous
  Country: CN (occurrence: CN)
  Receive Date: 20230515
  Receipt Date: 20230515
  Transmission Date: 20230721
  Serious: Yes (Other)
  Sender: FDA-Public Use
  Company Number: CN-GLAXOSMITHKLINE-CN2023APC066297

PATIENT

DRUGS (1)
  1. SERETIDE [Suspect]
     Active Substance: FLUTICASONE PROPIONATE\SALMETEROL XINAFOATE
     Indication: Asthma
     Dosage: 250 UG, QD
     Route: 055
     Dates: start: 20181220, end: 20230222

REACTIONS (6)
  - Mouth haemorrhage [Recovering/Resolving]
  - Oral candidiasis [Recovering/Resolving]
  - Oral mucosal erythema [Recovering/Resolving]
  - Oedema mouth [Recovering/Resolving]
  - Wrong technique in device usage process [Unknown]
  - Inappropriate schedule of product administration [Unknown]

NARRATIVE: CASE EVENT DATE: 20230220
